FAERS Safety Report 22151424 (Version 1)
Quarter: 2023Q1

REPORT INFORMATION
  Report Type: Spontaneous
  Country: US (occurrence: US)
  Receive Date: 20230329
  Receipt Date: 20230329
  Transmission Date: 20230418
  Serious: Yes (Other)
  Sender: FDA-Public Use
  Company Number: US-ASTELLAS-2023US009658

PATIENT
  Age: 4 Decade
  Sex: Male

DRUGS (16)
  1. MICAFUNGIN [Suspect]
     Active Substance: MICAFUNGIN
     Indication: Candida infection
     Route: 065
  2. MICAFUNGIN [Suspect]
     Active Substance: MICAFUNGIN
     Indication: Fungaemia
  3. TACROLIMUS [Interacting]
     Active Substance: TACROLIMUS
     Indication: Bone marrow transplant
     Route: 065
  4. TACROLIMUS [Interacting]
     Active Substance: TACROLIMUS
     Route: 065
  5. TACROLIMUS [Interacting]
     Active Substance: TACROLIMUS
     Route: 065
  6. TACROLIMUS [Interacting]
     Active Substance: TACROLIMUS
     Route: 065
  7. TACROLIMUS [Interacting]
     Active Substance: TACROLIMUS
     Route: 065
  8. TACROLIMUS [Interacting]
     Active Substance: TACROLIMUS
     Route: 065
  9. POSACONAZOLE [Interacting]
     Active Substance: POSACONAZOLE
     Indication: Pulmonary mass
     Route: 065
  10. POSACONAZOLE [Interacting]
     Active Substance: POSACONAZOLE
     Dosage: 400 MG, ONCE DAILY ON DAY 63 RESUMED
     Route: 065
  11. MYCOPHENOLIC ACID [Concomitant]
     Active Substance: MYCOPHENOLIC ACID
     Indication: Prophylaxis against transplant rejection
     Route: 065
  12. MYCOPHENOLIC ACID [Concomitant]
     Active Substance: MYCOPHENOLIC ACID
     Indication: Bone marrow transplant
  13. SIROLIMUS [Concomitant]
     Active Substance: SIROLIMUS
     Indication: Prophylaxis against transplant rejection
     Route: 065
  14. SIROLIMUS [Concomitant]
     Active Substance: SIROLIMUS
     Indication: Bone marrow transplant
     Route: 065
  15. SIROLIMUS [Concomitant]
     Active Substance: SIROLIMUS
     Route: 065
  16. VALACYCLOVIR [Concomitant]
     Active Substance: VALACYCLOVIR HYDROCHLORIDE
     Indication: Antiviral prophylaxis
     Route: 065

REACTIONS (3)
  - Hepatotoxicity [Unknown]
  - Drug interaction [Unknown]
  - Off label use [Unknown]
